FAERS Safety Report 7642261-1 (Version None)
Quarter: 2011Q3

REPORT INFORMATION
  Report Type: 
  Country: None (occurrence: None)
  Receive Date: 20110728
  Receipt Date: 20110721
  Transmission Date: 20111222
  Serious: Yes (Other)
  Sender: FDA-Public Use
  Company Number: PHHY2011MX66135

PATIENT
  Age: 51 Year
  Sex: Female

DRUGS (3)
  1. LAMICTAL [Concomitant]
     Dosage: UNK
     Dates: start: 20080701
  2. CALCIUM CARBONATE [Concomitant]
     Dosage: UNK
     Dates: start: 20100701
  3. ZOLEDRONOC ACID [Suspect]
     Indication: OSTEOPOROSIS
     Dosage: 5MG/100 ML PER YEAR
     Route: 042
     Dates: start: 20100701, end: 20110701

REACTIONS (3)
  - RENAL FAILURE [None]
  - MOVEMENT DISORDER [None]
  - FEELING ABNORMAL [None]
